FAERS Safety Report 7560005-9 (Version None)
Quarter: 2011Q2

REPORT INFORMATION
  Report Type: 
  Country: None (occurrence: None)
  Receive Date: 20110621
  Receipt Date: 20110608
  Transmission Date: 20111010
  Serious: Yes (Death, Hospitalization, Other)
  Sender: FDA-Public Use
  Company Number: PHHY2011US51778

PATIENT
  Age: 60 Year
  Sex: Male

DRUGS (8)
  1. PREDNISONE [Concomitant]
  2. BASILIXIMAB [Suspect]
     Indication: HEART TRANSPLANT
  3. EMTRICITABINE [Concomitant]
  4. TACROLIMUS [Concomitant]
  5. MYCOPHENOLATE MEFETIL [Concomitant]
  6. THYMOGLOBULIN [Concomitant]
  7. EFAVIRENZ [Concomitant]
  8. TENOFOVIR DISOPROXIL FUMARATE [Concomitant]

REACTIONS (6)
  - HIV ANTIBODY POSITIVE [None]
  - MULTI-ORGAN FAILURE [None]
  - BLOOD HIV RNA INCREASED [None]
  - HEPATITIS C RNA INCREASED [None]
  - HEART TRANSPLANT REJECTION [None]
  - CD4 LYMPHOCYTES DECREASED [None]
